FAERS Safety Report 10049428 (Version 1)
Quarter: 2014Q2

REPORT INFORMATION
  Report Type: Spontaneous
  Country: US (occurrence: US)
  Receive Date: 20140401
  Receipt Date: 20140401
  Transmission Date: 20141212
  Serious: Yes (Other)
  Sender: FDA-Public Use
  Company Number: US-JNJFOC-20140315505

PATIENT
  Age: 74 Year
  Sex: Male
  Weight: 94.8 kg

DRUGS (7)
  1. XARELTO [Suspect]
     Indication: CEREBROVASCULAR ACCIDENT PROPHYLAXIS
     Route: 048
     Dates: start: 2013
  2. XARELTO [Suspect]
     Indication: ATRIAL FIBRILLATION
     Route: 048
     Dates: start: 2013
  3. IBUPROFEN [Concomitant]
     Route: 065
  4. LASIX [Concomitant]
     Route: 065
  5. ENALAPRIL [Concomitant]
     Route: 065
  6. COREG [Concomitant]
     Route: 065
  7. PRAVASTATIN [Concomitant]
     Route: 065

REACTIONS (1)
  - Renal impairment [Unknown]
